FAERS Safety Report 13000027 (Version 1)
Quarter: 2016Q4

REPORT INFORMATION
  Report Type: Spontaneous
  Country: US (occurrence: US)
  Receive Date: 20161205
  Receipt Date: 20161205
  Transmission Date: 20170207
  Serious: Yes (Death)
  Sender: FDA-Public Use
  Company Number: US-ELI_LILLY_AND_COMPANY-US201611011450

PATIENT
  Sex: Female

DRUGS (3)
  1. HUMULIN R U-500 [Suspect]
     Active Substance: INSULIN HUMAN
     Dosage: 30 U, QD WITH LUNCH
     Route: 065
     Dates: start: 2014, end: 20161104
  2. HUMULIN R U-500 [Suspect]
     Active Substance: INSULIN HUMAN
     Dosage: 25 U, EACH EVENING
     Route: 065
     Dates: start: 2014, end: 20161104
  3. HUMULIN R U-500 [Suspect]
     Active Substance: INSULIN HUMAN
     Indication: TYPE 2 DIABETES MELLITUS
     Dosage: 27 U, QD WITH BREAKFAST
     Route: 065
     Dates: start: 2014, end: 20161104

REACTIONS (2)
  - Neoplasm malignant [Fatal]
  - Chronic obstructive pulmonary disease [Fatal]
